FAERS Safety Report 4906940-9 (Version None)
Quarter: 2006Q1

REPORT INFORMATION
  Report Type: 
  Country: None (occurrence: None)
  Receive Date: 20060209
  Receipt Date: 20051216
  Transmission Date: 20060701
  Serious: Yes (Other)
  Sender: FDA-Public Use
  Company Number: US-GILEAD-2005-0009031

PATIENT
  Sex: Female

DRUGS (9)
  1. VIREAD [Suspect]
     Route: 064
     Dates: start: 20050506, end: 20051019
  2. VIREAD [Suspect]
     Route: 064
     Dates: end: 20050228
  3. TRUVADA [Suspect]
     Route: 064
     Dates: start: 20050406, end: 20050506
  4. COMBIVIR [Concomitant]
     Route: 064
     Dates: start: 20050506, end: 20051011
  5. KALETRA [Concomitant]
     Route: 064
     Dates: start: 20050406
  6. KALETRA [Concomitant]
     Route: 064
     Dates: end: 20050228
  7. EPIVIR [Concomitant]
     Route: 064
     Dates: end: 20050228
  8. TRIZIVIR [Concomitant]
     Route: 064
     Dates: start: 20051011, end: 20051019
  9. INVIRASE [Concomitant]
     Dates: start: 20051017, end: 20051019

REACTIONS (1)
  - CEPHALHAEMATOMA [None]
